FAERS Safety Report 16480191 (Version 4)
Quarter: 2020Q3

REPORT INFORMATION
  Report Type: Report from Study
  Country: FR (occurrence: FR)
  Receive Date: 20190626
  Receipt Date: 20200716
  Transmission Date: 20201102
  Serious: Yes (Death, Life-Threatening, Hospitalization, Other)
  Sender: FDA-Public Use
  Company Number: FR-INCYTE CORPORATION-2019IN006143

PATIENT

DRUGS (2)
  1. JAKAVI [Suspect]
     Active Substance: RUXOLITINIB
     Indication: MYELOFIBROSIS
     Dosage: 30 MG, QD
     Route: 048
     Dates: start: 20190313, end: 20191227
  2. CORTANCYL [Concomitant]
     Active Substance: PREDNISONE
     Indication: PYREXIA
     Dosage: 15 MG, UNK
     Route: 048
     Dates: start: 20190507

REACTIONS (7)
  - Myelofibrosis [Fatal]
  - Cytopenia [Unknown]
  - Anaemia [Recovered/Resolved]
  - Bone pain [Not Recovered/Not Resolved]
  - Herpes zoster [Recovered/Resolved]
  - Acute leukaemia [Fatal]
  - Anaemia [Recovered/Resolved]

NARRATIVE: CASE EVENT DATE: 20190507
